FAERS Safety Report 4285555-2 (Version None)
Quarter: 2004Q1

REPORT INFORMATION
  Report Type: 
  Country: None (occurrence: None)
  Receive Date: 20040204
  Receipt Date: 20040120
  Transmission Date: 20041129
  Serious: Yes (Other)
  Sender: FDA-Public Use
  Company Number: US-JNJFOC-20040103821

PATIENT
  Age: 65 Year
  Sex: Male
  Weight: 85.2762 kg

DRUGS (8)
  1. NATRECOR [Suspect]
     Indication: CARDIAC FAILURE CONGESTIVE
     Dates: start: 20030612, end: 20030701
  2. BUMEX (BUNMETANIDE) [Concomitant]
  3. LISINOPRIL [Concomitant]
  4. L;IPITOR (ATORVATATIN) [Concomitant]
  5. COREG [Concomitant]
  6. LEVOXYL [Concomitant]
  7. GLIPIZIDE [Concomitant]
  8. ASPIRIN [Concomitant]

REACTIONS (7)
  - HAEMATOCRIT DECREASED [None]
  - HAEMATURIA [None]
  - HAEMOPTYSIS [None]
  - PLATELET COUNT DECREASED [None]
  - POST PROCEDURAL HAEMORRHAGE [None]
  - RESPIRATORY ARREST [None]
  - RETROPERITONEAL HAEMORRHAGE [None]
